FAERS Safety Report 14371467 (Version 2)
Quarter: 2018Q1

REPORT INFORMATION
  Report Type: Spontaneous
  Country: ES (occurrence: ES)
  Receive Date: 20180110
  Receipt Date: 20180309
  Transmission Date: 20180509
  Serious: Yes (Hospitalization)
  Sender: FDA-Public Use
  Company Number: ES-AUROBINDO-AUR-APL-2018-001204

PATIENT
  Age: 12 Year
  Sex: Male

DRUGS (11)
  1. TOPIRAMATE. [Concomitant]
     Active Substance: TOPIRAMATE
     Dosage: 50 MG, UNK
     Route: 065
  2. LISDEXAMFETAMINE [Concomitant]
     Active Substance: LISDEXAMFETAMINE
     Indication: ATTENTION DEFICIT/HYPERACTIVITY DISORDER
     Dosage: ()
  3. ARIPIPRAZOL [Suspect]
     Active Substance: ARIPIPRAZOLE
     Indication: ABNORMAL BEHAVIOUR
     Dosage: 15 MG, BID
     Route: 048
     Dates: start: 20150101
  4. ARIPIPRAZOL [Suspect]
     Active Substance: ARIPIPRAZOLE
     Dosage: 20 MILLIGRAM, ONCE A DAY
     Route: 048
  5. TOPIRAMATE. [Concomitant]
     Active Substance: TOPIRAMATE
     Indication: HYPERPHAGIA
     Dosage: 100 MG, BID ()
     Route: 065
  6. LISDEXAMFETAMINE [Concomitant]
     Active Substance: LISDEXAMFETAMINE
     Dosage: 70 MG, UNK
     Route: 065
  7. ARIPIPRAZOL [Suspect]
     Active Substance: ARIPIPRAZOLE
     Indication: BIPOLAR DISORDER
     Dosage: 10 MG, BID
     Route: 048
  8. LISDEXAMFETAMINE [Concomitant]
     Active Substance: LISDEXAMFETAMINE
     Indication: HYPERPHAGIA
     Dosage: ()
  9. ARIPIPRAZOL [Suspect]
     Active Substance: ARIPIPRAZOLE
     Dosage: 30 MILLIGRAM, ONCE A DAY
     Route: 048
  10. TOPIRAMATE. [Concomitant]
     Active Substance: TOPIRAMATE
     Indication: BIPOLAR DISORDER
     Dosage: ()
  11. OLANZAPINE. [Concomitant]
     Active Substance: OLANZAPINE
     Indication: BIPOLAR DISORDER
     Dosage: 10 MG, QD
     Route: 065

REACTIONS (5)
  - Off label use [Unknown]
  - Abnormal behaviour [Unknown]
  - Pyrexia [Unknown]
  - Confusional state [Unknown]
  - Disorientation [Unknown]

NARRATIVE: CASE EVENT DATE: 20150101
